FAERS Safety Report 13653265 (Version 1)
Quarter: 2017Q2

REPORT INFORMATION
  Report Type: Spontaneous
  Country: US (occurrence: US)
  Receive Date: 20170614
  Receipt Date: 20170614
  Transmission Date: 20170830
  Serious: No
  Sender: FDA-Public Use
  Company Number: US-ROCHE-1295643

PATIENT
  Age: 71 Year
  Sex: Female
  Weight: 83.08 kg

DRUGS (6)
  1. CALTRATE [Concomitant]
     Active Substance: CALCIUM CARBONATE
  2. XELODA [Suspect]
     Active Substance: CAPECITABINE
     Indication: BREAST CANCER METASTATIC
     Dosage: 3 TABS IN MORNING  (AM) AND 4 TABLETS IN EVENING (PM) 2 WKS ON-1 WEEK OFF.
     Route: 048
     Dates: start: 20130912
  3. XELODA [Suspect]
     Active Substance: CAPECITABINE
     Dosage: 1500 MG IN THE MORNING AND 2000 MG IN EVENING (14 DAYS ON FOLLOWED BY 07 DAYS OFF- 21 DAY CYCLE).
     Route: 048
     Dates: start: 20140328
  4. ZOMETA [Concomitant]
     Active Substance: ZOLEDRONIC ACID
  5. XARELTO [Concomitant]
     Active Substance: RIVAROXABAN
  6. VITAMIN B12 [Concomitant]
     Active Substance: CYANOCOBALAMIN
     Dosage: 1 MONTH
     Route: 065

REACTIONS (6)
  - Epistaxis [Recovered/Resolved]
  - Diarrhoea [Unknown]
  - Palmar-plantar erythrodysaesthesia syndrome [Unknown]
  - Nausea [Unknown]
  - Stomatitis [Unknown]
  - Rash [Unknown]

NARRATIVE: CASE EVENT DATE: 20131206
